FAERS Safety Report 25939934 (Version 2)
Quarter: 2025Q4

REPORT INFORMATION
  Report Type: Spontaneous
  Country: JP (occurrence: JP)
  Receive Date: 20251020
  Receipt Date: 20251114
  Transmission Date: 20260117
  Serious: Yes (Other)
  Sender: MERCK SHARP & DOHME LLC
  Company Number: JP-009507513-2340999

PATIENT
  Age: 64 Year
  Sex: Female

DRUGS (5)
  1. KEYTRUDA [Suspect]
     Active Substance: PEMBROLIZUMAB
     Indication: Adenosquamous carcinoma of the cervix
  2. KEYTRUDA [Suspect]
     Active Substance: PEMBROLIZUMAB
     Indication: Adenosquamous carcinoma of the cervix
     Dates: end: 2025
  3. BEVACIZUMAB [Suspect]
     Active Substance: BEVACIZUMAB
     Indication: Adenosquamous carcinoma of the cervix
  4. CARBOPLATIN [Suspect]
     Active Substance: CARBOPLATIN
     Indication: Adenosquamous carcinoma of the cervix
  5. PACLITAXEL [Suspect]
     Active Substance: PACLITAXEL
     Indication: Adenosquamous carcinoma of the cervix

REACTIONS (7)
  - Myelosuppression [Unknown]
  - Salpingectomy [Unknown]
  - Malignant neoplasm progression [Unknown]
  - Hypoaesthesia [Unknown]
  - Complicated appendicitis [Unknown]
  - Dysuria [Unknown]
  - Urine protein/creatinine ratio increased [Unknown]
